FAERS Safety Report 10790301 (Version 2)
Quarter: 2015Q1

REPORT INFORMATION
  Report Type: Spontaneous
  Country: JP (occurrence: JP)
  Receive Date: 20150212
  Receipt Date: 20150311
  Transmission Date: 20150721
  Serious: Yes (Hospitalization)
  Sender: FDA-Public Use
  Company Number: JP-ASTRAZENECA-2015SE12134

PATIENT
  Age: 11328 Day
  Sex: Male
  Weight: 68 kg

DRUGS (2)
  1. SERENACE [Suspect]
     Active Substance: HALOPERIDOL
     Indication: DELIRIUM
     Route: 042
     Dates: start: 20150202, end: 20150202
  2. OMEPRAL [Suspect]
     Active Substance: OMEPRAZOLE
     Indication: STRESS ULCER
     Route: 041
     Dates: start: 20150202, end: 20150202

REACTIONS (1)
  - Rhabdomyolysis [Recovering/Resolving]

NARRATIVE: CASE EVENT DATE: 20150203
